FAERS Safety Report 6651542-X (Version None)
Quarter: 2010Q1

REPORT INFORMATION
  Report Type: 
  Country: None (occurrence: None)
  Receive Date: 20100325
  Receipt Date: 20100322
  Transmission Date: 20100710
  Serious: Yes (Other)
  Sender: FDA-Public Use
  Company Number: A0851371A

PATIENT
  Sex: Female

DRUGS (2)
  1. LAMICTAL CD [Suspect]
     Route: 065
  2. ENERGY SUPPLEMENT [Suspect]
     Route: 048
     Dates: start: 20100321

REACTIONS (1)
  - CIRCULATORY COLLAPSE [None]
